FAERS Safety Report 8163304-5 (Version None)
Quarter: 2012Q1

REPORT INFORMATION
  Report Type: 
  Country: None (occurrence: None)
  Receive Date: 20120224
  Receipt Date: 20110504
  Transmission Date: 20120608
  Serious: No
  Sender: FDA-Public Use
  Company Number: US-PFIZER INC-K201100539

PATIENT
  Sex: Female
  Weight: 55.329 kg

DRUGS (5)
  1. ALPRAZOLAM [Concomitant]
     Dosage: 0.5 MG, 3X/DAY
  2. FLECTOR [Suspect]
     Indication: MUSCULOSKELETAL PAIN
     Dosage: 1 PATCH, Q12H
     Route: 061
     Dates: start: 20110428, end: 20110502
  3. NEXIUM [Concomitant]
     Indication: GASTROOESOPHAGEAL REFLUX DISEASE
     Dosage: UNK
  4. ACTONEL [Concomitant]
     Dosage: 5 MG, 1X/DAY
  5. WELLBUTRIN [Concomitant]
     Indication: DEPRESSION
     Dosage: 300 MG, 1X/DAY

REACTIONS (1)
  - NAUSEA [None]
